FAERS Safety Report 22258526 (Version 1)
Quarter: 2023Q2

REPORT INFORMATION
  Report Type: Spontaneous
  Country: CN (occurrence: None)
  Receive Date: 20230427
  Receipt Date: 20230427
  Transmission Date: 20230722
  Serious: Yes (Other)
  Sender: FDA-Public Use
  Company Number: CN-ROCHE-3338685

PATIENT
  Age: 62 Year
  Sex: Female

DRUGS (12)
  1. RITUXIMAB [Suspect]
     Active Substance: RITUXIMAB
     Indication: Diffuse large B-cell lymphoma
     Dosage: R-CHOP
     Route: 065
  2. POLATUZUMAB VEDOTIN [Concomitant]
     Active Substance: POLATUZUMAB VEDOTIN
     Indication: Diffuse large B-cell lymphoma
     Dosage: DAY 1, POLATUZUMAB VEDOTIN, BENDAMUSTINE, CHIDAMIDE+RITUXIMAB (NO ROCHE PRODUCT)?POLATUZUMAB VEDOTIN
     Route: 041
  3. DOXORUBICIN [Concomitant]
     Active Substance: DOXORUBICIN
     Indication: Diffuse large B-cell lymphoma
     Dosage: R-CHOP?R (NO ROCHE PRODUCT)-CHOP+ CHIDAMIDE
  4. VINCRISTINE [Concomitant]
     Active Substance: VINCRISTINE
     Indication: Diffuse large B-cell lymphoma
     Dosage: R-CHOP?R (NO ROCHE PRODUCT)-CHOP+ CHIDAMIDE
  5. PREDNISONE [Concomitant]
     Active Substance: PREDNISONE
     Indication: Diffuse large B-cell lymphoma
     Dosage: R-CHOP?R (NO ROCHE PRODUCT)-CHOP+ CHIDAMIDE
  6. RITUXIMAB [Concomitant]
     Active Substance: RITUXIMAB
     Indication: Diffuse large B-cell lymphoma
     Dosage: R (NO ROCHE PRODUCT)-CHOP+ CHIDAMIDE?DAY1, POLATUZUMAB VEDOTIN, BENDAMUSTINE, CHIDAMIDE+RITUXIMAB (N
     Route: 041
  7. CYCLOPHOSPHAMIDE [Concomitant]
     Active Substance: CYCLOPHOSPHAMIDE
     Indication: Diffuse large B-cell lymphoma
     Dosage: R-CHOP?R (NO ROCHE PRODUCT)-CHOP+ CHIDAMIDE
  8. BENDAMUSTINE [Concomitant]
     Active Substance: BENDAMUSTINE
     Indication: Diffuse large B-cell lymphoma
     Dosage: DAY 1-2, POLATUZUMAB VEDOTIN, BENDAMUSTINE, CHIDAMIDE+RITUXIMAB (NO ROCHE?PRODUCT), POLATUZUMAB VEDO
     Route: 041
  9. TUCIDINOSTAT [Concomitant]
     Active Substance: TUCIDINOSTAT
     Indication: Diffuse large B-cell lymphoma
     Dosage: R (NO ROCHE PRODUCT)-CHOP+ CHIDAMIDE
  10. TUCIDINOSTAT [Concomitant]
     Active Substance: TUCIDINOSTAT
     Dosage: CHIDAMIDE
  11. TUCIDINOSTAT [Concomitant]
     Active Substance: TUCIDINOSTAT
     Dosage: POLATUZUMAB VEDOTIN, BENDAMUSTINE, CHIDAMIDE+RITUXIMAB (NO ROCHE PRODUCT)?POLATUZUMAB VEDOTIN, BENDA
     Route: 048
  12. METHYLPREDNISOLONE [Concomitant]
     Active Substance: METHYLPREDNISOLONE
     Indication: Diffuse large B-cell lymphoma

REACTIONS (1)
  - Cerebral infarction [Unknown]
